FAERS Safety Report 25817958 (Version 1)
Quarter: 2025Q3

REPORT INFORMATION
  Report Type: Spontaneous
  Country: US (occurrence: US)
  Receive Date: 20250918
  Receipt Date: 20250918
  Transmission Date: 20251021
  Serious: No
  Sender: PFIZER
  Company Number: US-PFIZER INC-PV202500111271

PATIENT
  Age: 80 Year

DRUGS (1)
  1. LEVOXYL [Suspect]
     Active Substance: LEVOTHYROXINE SODIUM

REACTIONS (3)
  - Therapeutic product effect decreased [Unknown]
  - Product dispensing error [Unknown]
  - Recalled product administered [Unknown]
